FAERS Safety Report 14539960 (Version 1)
Quarter: 2018Q1

REPORT INFORMATION
  Report Type: Spontaneous
  Country: BE (occurrence: BE)
  Receive Date: 20180216
  Receipt Date: 20180216
  Transmission Date: 20180509
  Serious: Yes (Hospitalization)
  Sender: FDA-Public Use
  Company Number: BE-JNJFOC-20180215471

PATIENT
  Age: 65 Year
  Sex: Female
  Weight: 52.2 kg

DRUGS (25)
  1. DOXORUBICIN HYDROCHLORIDE. [Suspect]
     Active Substance: DOXORUBICIN HYDROCHLORIDE
     Indication: OVARIAN GERM CELL EMBRYONAL CARCINOMA STAGE III
     Route: 042
     Dates: start: 20170412, end: 20170529
  2. MONOPROST [Concomitant]
     Active Substance: LATANOPROST
     Route: 065
  3. DIPIPERON [Concomitant]
     Active Substance: PIPAMPERONE
     Route: 065
  4. PANTOPRAZOLE SODIUM SESQUIHYDRATE [Concomitant]
     Active Substance: PANTOPRAZOLE SODIUM
     Route: 065
  5. FARLETUZUMAB [Suspect]
     Active Substance: FARLETUZUMAB
     Indication: OVARIAN GERM CELL EMBRYONAL CARCINOMA STAGE III
     Route: 042
     Dates: start: 20170105, end: 20170223
  6. FARLETUZUMAB [Suspect]
     Active Substance: FARLETUZUMAB
     Indication: OVARIAN GERM CELL EMBRYONAL CARCINOMA STAGE III
     Route: 042
     Dates: start: 20170529, end: 20170602
  7. NATRIUMBIKARBONAT [Concomitant]
     Route: 065
  8. D-VITAL CALCIUM [Concomitant]
     Route: 065
  9. DAFALGAN [Concomitant]
     Active Substance: ACETAMINOPHEN
     Route: 065
  10. DOXORUBICIN HYDROCHLORIDE. [Suspect]
     Active Substance: DOXORUBICIN HYDROCHLORIDE
     Indication: OVARIAN GERM CELL EMBRYONAL CARCINOMA STAGE III
     Route: 042
     Dates: start: 20161222, end: 20170223
  11. CARBOPLATIN. [Suspect]
     Active Substance: CARBOPLATIN
     Indication: OVARIAN GERM CELL EMBRYONAL CARCINOMA STAGE III
     Route: 042
     Dates: start: 20161222, end: 20170223
  12. CARBOPLATIN. [Suspect]
     Active Substance: CARBOPLATIN
     Indication: OVARIAN GERM CELL EMBRYONAL CARCINOMA STAGE III
     Route: 042
     Dates: start: 20170412, end: 20170529
  13. FARLETUZUMAB [Suspect]
     Active Substance: FARLETUZUMAB
     Indication: OVARIAN GERM CELL EMBRYONAL CARCINOMA STAGE III
     Route: 042
     Dates: start: 20170330, end: 20170518
  14. FURADANTINE [Concomitant]
     Active Substance: NITROFURANTOIN
     Route: 065
  15. LITICAN [Concomitant]
     Active Substance: ALIZAPRIDE HYDROCHLORIDE
     Route: 065
  16. ORISEL [Concomitant]
     Route: 065
  17. GLUCOSE 5% [Concomitant]
     Active Substance: DEXTROSE
     Route: 065
  18. COMBIGAN [Concomitant]
     Active Substance: BRIMONIDINE TARTRATE\TIMOLOL MALEATE
     Route: 047
  19. LYSANXIA [Concomitant]
     Active Substance: PRAZEPAM
     Route: 065
  20. FARLETUZUMAB [Suspect]
     Active Substance: FARLETUZUMAB
     Indication: OVARIAN GERM CELL EMBRYONAL CARCINOMA STAGE III
     Route: 042
     Dates: start: 20170316, end: 20170316
  21. SIPRALEXA [Concomitant]
     Active Substance: ESCITALOPRAM OXALATE
     Route: 065
  22. REDOMEX [Concomitant]
     Active Substance: AMITRIPTYLINE HYDROCHLORIDE
     Route: 065
  23. FARLETUZUMAB [Suspect]
     Active Substance: FARLETUZUMAB
     Indication: OVARIAN GERM CELL EMBRYONAL CARCINOMA STAGE III
     Route: 042
     Dates: start: 20161222, end: 20161229
  24. SANDOSTATINE [Concomitant]
     Active Substance: OCTREOTIDE ACETATE
     Route: 065
  25. QUESTRAN [Concomitant]
     Active Substance: CHOLESTYRAMINE
     Route: 065

REACTIONS (4)
  - Hyperkalaemia [Recovered/Resolved]
  - Thrombocytopenia [Recovered/Resolved]
  - Acute kidney injury [Recovered/Resolved]
  - Urinary tract infection [Recovered/Resolved]

NARRATIVE: CASE EVENT DATE: 20170119
